FAERS Safety Report 12547917 (Version 1)
Quarter: 2016Q3

REPORT INFORMATION
  Report Type: Spontaneous
  Country: FR (occurrence: FR)
  Receive Date: 20160712
  Receipt Date: 20160712
  Transmission Date: 20161109
  Serious: Yes (Other)
  Sender: FDA-Public Use
  Company Number: FR-BAXTER-2016BAX035403

PATIENT
  Age: 8 Year
  Sex: Female

DRUGS (11)
  1. VINCRISTINE SULFATE. [Suspect]
     Active Substance: VINCRISTINE SULFATE
     Indication: OVARIAN CANCER
  2. ZOPHREN [Concomitant]
     Active Substance: ONDANSETRON
     Indication: OVARIAN CANCER
  3. HOLOXAN 2000 MG, POUDRE POUR USAGE PARENT?RAL [Suspect]
     Active Substance: IFOSFAMIDE
     Indication: EMBRYONAL RHABDOMYOSARCOMA
     Dosage: INFUSION
     Route: 042
     Dates: start: 20111122, end: 20111122
  4. HOLOXAN 2000 MG, POUDRE POUR USAGE PARENT?RAL [Suspect]
     Active Substance: IFOSFAMIDE
     Indication: OVARIAN CANCER
     Dosage: INFUSION, PROLONGED INFUSION DURATION OVER 8 HOURS
     Route: 042
     Dates: start: 20111122, end: 20111122
  5. VINCRISTINE SULFATE. [Suspect]
     Active Substance: VINCRISTINE SULFATE
     Indication: EMBRYONAL RHABDOMYOSARCOMA
     Dosage: INFUSION
     Route: 042
     Dates: start: 20111122
  6. ZOPHREN [Concomitant]
     Active Substance: ONDANSETRON
     Indication: EMBRYONAL RHABDOMYOSARCOMA
     Dosage: INFUSION
     Route: 042
     Dates: start: 20111122
  7. DOXORUBICIN HYDROCHLORIDE. [Suspect]
     Active Substance: DOXORUBICIN HYDROCHLORIDE
     Indication: EMBRYONAL RHABDOMYOSARCOMA
     Route: 042
     Dates: start: 20111122
  8. DOXORUBICIN HYDROCHLORIDE. [Suspect]
     Active Substance: DOXORUBICIN HYDROCHLORIDE
     Indication: OVARIAN CANCER
  9. DACTINOMYCIN [Suspect]
     Active Substance: DACTINOMYCIN
     Indication: EMBRYONAL RHABDOMYOSARCOMA
     Dosage: INFUSION
     Route: 042
     Dates: start: 20111122
  10. DACTINOMYCIN [Suspect]
     Active Substance: DACTINOMYCIN
     Indication: OVARIAN CANCER
  11. UROMITEXAN 5 G/50 ML, SOLUTION INJECTABLE POUR PERFUSION EN FLACON [Suspect]
     Active Substance: MESNA
     Indication: PRODUCT USED FOR UNKNOWN INDICATION
     Route: 065

REACTIONS (1)
  - Encephalopathy [Recovered/Resolved]

NARRATIVE: CASE EVENT DATE: 20111122
